FAERS Safety Report 6287248-9 (Version None)
Quarter: 2009Q3

REPORT INFORMATION
  Report Type: 
  Country: None (occurrence: None)
  Receive Date: 20090728
  Receipt Date: 20090715
  Transmission Date: 20100115
  Serious: Yes (Other)
  Sender: FDA-Public Use
  Company Number: PHEH2009US01397

PATIENT
  Sex: Male

DRUGS (9)
  1. ZOMETA [Suspect]
     Indication: MULTIPLE MYELOMA
     Dosage: UNK
     Dates: end: 20050101
  2. AREDIA [Suspect]
     Indication: MULTIPLE MYELOMA
     Dosage: 90 MG, QMO
     Dates: start: 19960101
  3. VELCADE [Concomitant]
  4. DEXAMETHASONE [Concomitant]
  5. DOXIL [Concomitant]
  6. BORTEZOMIB [Concomitant]
  7. PROCHLORPERAZINE [Concomitant]
  8. ACETAMINOPHEN [Concomitant]
  9. OXYCODONE [Concomitant]

REACTIONS (21)
  - ANXIETY [None]
  - BONE DISORDER [None]
  - BONE OPERATION [None]
  - DECREASED APPETITE [None]
  - DEEP VEIN THROMBOSIS [None]
  - DEFORMITY [None]
  - HYPOPHAGIA [None]
  - IMPAIRED HEALING [None]
  - INJURY [None]
  - MASTICATION DISORDER [None]
  - NEUROPATHY PERIPHERAL [None]
  - ORTHOSTATIC HYPOTENSION [None]
  - OSTEONECROSIS [None]
  - PAIN [None]
  - PLASMACYTOMA [None]
  - PURULENT DISCHARGE [None]
  - RENAL FAILURE ACUTE [None]
  - SENSORY LOSS [None]
  - STEM CELL TRANSPLANT [None]
  - SWELLING FACE [None]
  - ULCER [None]
